FAERS Safety Report 5403837-5 (Version None)
Quarter: 2007Q3

REPORT INFORMATION
  Report Type: 
  Country: None (occurrence: None)
  Receive Date: 20070802
  Receipt Date: 20070724
  Transmission Date: 20080115
  Serious: Yes (Other)
  Sender: FDA-Public Use
  Company Number: FR-AVENTIS-200712375FR

PATIENT
  Age: 61 Year
  Sex: Female
  Weight: 56 kg

DRUGS (10)
  1. ARAVA [Suspect]
     Indication: RHEUMATOID ARTHRITIS
     Route: 048
     Dates: start: 20010101
  2. CORTANCYL [Concomitant]
     Indication: RHEUMATOID ARTHRITIS
     Route: 048
  3. NEXIUM [Concomitant]
     Route: 048
  4. IDEOS                              /00944201/ [Concomitant]
     Route: 048
  5. SYMBICORT [Concomitant]
     Indication: ASTHMA
     Route: 055
  6. CITALOPRAM HYDROBROMIDE [Concomitant]
     Route: 048
  7. CRESTOR [Concomitant]
     Route: 048
  8. DOLIPRANE [Concomitant]
  9. LASILIX                            /00032601/ [Concomitant]
     Route: 048
  10. POTASSIUM CHLORIDE [Concomitant]
     Route: 048

REACTIONS (4)
  - CARDIOMYOPATHY [None]
  - COMPUTERISED TOMOGRAM THORAX ABNORMAL [None]
  - LUNG DISORDER [None]
  - PLEURAL EFFUSION [None]
